FAERS Safety Report 8166125-2 (Version None)
Quarter: 2012Q1

REPORT INFORMATION
  Report Type: 
  Country: None (occurrence: None)
  Receive Date: 20120227
  Receipt Date: 20110421
  Transmission Date: 20120608
  Serious: No
  Sender: FDA-Public Use
  Company Number: US-MYLANLABS-2011S1006497

PATIENT
  Age: 17 Year
  Sex: Female
  Weight: 61.24 kg

DRUGS (4)
  1. AMNESTEEM [Suspect]
     Indication: ACNE
     Route: 048
     Dates: start: 20101220, end: 20110101
  2. IBUPROFEN (ADVIL) [Concomitant]
  3. AMNESTEEM [Suspect]
     Route: 048
     Dates: start: 20110101, end: 20110304
  4. ACETAMINOPHEN [Concomitant]

REACTIONS (5)
  - MOOD ALTERED [None]
  - ARTHRALGIA [None]
  - HEADACHE [None]
  - PAIN IN EXTREMITY [None]
  - ABDOMINAL PAIN [None]
